FAERS Safety Report 6559380 (Version 2)
Quarter: 2022Q1

REPORT INFORMATION
  Report Type: Report from Study
  Country: US (occurrence: US)
  Receive Date: 20080222
  Receipt Date: 20220112
  Transmission Date: 20220424
  Serious: Yes (Death, Hospitalization)
  Sender: FDA-Public Use
  Company Number: US-PFIZER INC-2008014355

PATIENT
  Age: 59 Year
  Sex: Male
  Weight: 88 kg

DRUGS (7)
  1. SUTENT [Suspect]
     Active Substance: SUNITINIB MALATE
     Indication: Follicular thyroid cancer
     Dosage: 50 MG, CYCLIC DAILY FOR 28 DAYS EVERY 6 WEEKS
     Route: 048
     Dates: start: 20061226, end: 20071029
  2. LIPITOR [Suspect]
     Active Substance: ATORVASTATIN CALCIUM
  3. SYNTHROID [Concomitant]
     Active Substance: LEVOTHYROXINE SODIUM
  4. NEXIUM [Concomitant]
     Active Substance: ESOMEPRAZOLE MAGNESIUM
  5. HALDOL [Concomitant]
     Active Substance: HALOPERIDOL
  6. ZOFRAN [Concomitant]
     Active Substance: ONDANSETRON HYDROCHLORIDE
  7. PROPRANOLOL HYDROCHLORIDE [Concomitant]
     Active Substance: PROPRANOLOL HYDROCHLORIDE

REACTIONS (1)
  - Acute hepatic failure [Fatal]

NARRATIVE: CASE EVENT DATE: 20071025
